FAERS Safety Report 8888361 (Version 3)
Quarter: 2013Q1

REPORT INFORMATION
  Report Type: Spontaneous
  Country: US (occurrence: US)
  Receive Date: 20121106
  Receipt Date: 20130311
  Transmission Date: 20140127
  Serious: No
  Sender: FDA-Public Use
  Company Number: US-009507513-1210USA010677

PATIENT
  Sex: Female
  Weight: 53.52 kg

DRUGS (7)
  1. VICTRELIS [Suspect]
     Indication: HEPATITIS C
     Dosage: 200 MG, TID
     Route: 048
     Dates: start: 20120921
  2. RIBAVIRIN [Suspect]
  3. PEGASYS [Suspect]
  4. ASACOL [Concomitant]
  5. CYMBALTA [Concomitant]
  6. TRAZODONE HYDROCHLORIDE [Concomitant]
  7. LORTAB [Concomitant]

REACTIONS (7)
  - Somnolence [Recovered/Resolved]
  - Frequent bowel movements [Recovered/Resolved]
  - Nausea [Recovered/Resolved]
  - Rash [Recovered/Resolved]
  - Accidental exposure to product [Unknown]
  - Medication residue present [Unknown]
  - Product quality issue [Unknown]
